FAERS Safety Report 8474578-5 (Version None)
Quarter: 2012Q2

REPORT INFORMATION
  Report Type: 
  Country: None (occurrence: None)
  Receive Date: 20120628
  Receipt Date: 20120625
  Transmission Date: 20120825
  Serious: Yes (Hospitalization)
  Sender: FDA-Public Use
  Company Number: US-BAYER-2012-063575

PATIENT
  Age: 47 Year
  Sex: Female
  Weight: 102.4 kg

DRUGS (7)
  1. LISINOPRIL [Concomitant]
     Dosage: 10 MG, UNK
     Route: 048
  2. LOSARTAN POTASSIUM [Concomitant]
     Indication: HYPERTENSION
     Dosage: 50 MG, UNK,
     Route: 048
     Dates: start: 20120314
  3. ZOLOFT [Concomitant]
     Indication: DEPRESSION
     Dosage: 50 MG, UNK
     Route: 048
     Dates: start: 20111129, end: 20120314
  4. ZOLOFT [Concomitant]
     Indication: ANGER
  5. YAZ [Suspect]
     Indication: CONTRACEPTION
  6. DROSPIRENONE AND ETHINYL ESTRADIOL [Suspect]
  7. ASPIRIN [Concomitant]
     Dosage: 325 MG, PROR TO ARRIVAL, UNK
     Route: 048
     Dates: start: 20120314

REACTIONS (2)
  - DEEP VEIN THROMBOSIS [None]
  - PULMONARY EMBOLISM [None]
